FAERS Safety Report 11071215 (Version 1)
Quarter: 2015Q2

REPORT INFORMATION
  Report Type: Spontaneous
  Country: US (occurrence: None)
  Receive Date: 20150427
  Receipt Date: 20150427
  Transmission Date: 20150821
  Serious: Yes (Disabling, Other)
  Sender: FDA-Public Use
  Company Number: None

PATIENT
  Age: 30 Year
  Sex: Female
  Weight: 58.97 kg

DRUGS (1)
  1. TOPAMAX [Suspect]
     Active Substance: TOPIRAMATE
     Indication: MIGRAINE
     Dosage: 7 MONTHS, 75MG, ONCE DAILY, TAKEN BY MOUTH
     Route: 048

REACTIONS (2)
  - Visual acuity reduced [None]
  - Retinal vein occlusion [None]

NARRATIVE: CASE EVENT DATE: 20110421
